FAERS Safety Report 10689097 (Version 1)
Quarter: 2015Q1

REPORT INFORMATION
  Report Type: Spontaneous
  Country: GB (occurrence: GB)
  Receive Date: 20150104
  Receipt Date: 20150104
  Transmission Date: 20150720
  Serious: Yes (Other)
  Sender: FDA-Public Use
  Company Number: GB-009507513-1501GBR000008

PATIENT
  Age: 30 Year
  Sex: Male

DRUGS (3)
  1. PROPECIA [Suspect]
     Active Substance: FINASTERIDE
     Indication: ANDROGENETIC ALOPECIA
     Dosage: 0.25 MG, QD
     Route: 048
  2. MINOXIDIL. [Concomitant]
     Active Substance: MINOXIDIL
  3. VITAMIN B COMPLEX [Concomitant]
     Active Substance: CYANOCOBALAMIN\DEXPANTHENOL\NIACINAMIDE\PYRIDOXINE HYDROCHLORIDE\RIBOFLAVIN 5^-PHOSPHATE SODIUM\THIAMINE HYDROCHLORIDE\VITAMIN B COMPLEX

REACTIONS (5)
  - Memory impairment [Recovering/Resolving]
  - Cognitive disorder [Recovering/Resolving]
  - Anxiety [Recovering/Resolving]
  - Aphasia [Recovering/Resolving]
  - Mental impairment [Recovering/Resolving]
